FAERS Safety Report 12161193 (Version 2)
Quarter: 2016Q2

REPORT INFORMATION
  Report Type: Spontaneous
  Country: AU (occurrence: AU)
  Receive Date: 20160308
  Receipt Date: 20160628
  Transmission Date: 20160815
  Serious: Yes (Hospitalization)
  Sender: FDA-Public Use
  Company Number: AU-DSJP-DSU-2016-108481

PATIENT

DRUGS (1)
  1. OLMETEC PLUS 40/12.5 [Suspect]
     Active Substance: HYDROCHLOROTHIAZIDE\OLMESARTAN MEDOXOMIL
     Indication: HYPERTENSION
     Dosage: 40/12.5 MG, BID

REACTIONS (3)
  - Orthostatic hypotension [Recovered/Resolved]
  - Withdrawal hypertension [Unknown]
  - Off label use [Recovered/Resolved]
